FAERS Safety Report 8416965-7 (Version None)
Quarter: 2012Q2

REPORT INFORMATION
  Report Type: 
  Country: None (occurrence: None)
  Receive Date: 20120606
  Receipt Date: 20120531
  Transmission Date: 20120825
  Serious: Yes (Disabling)
  Sender: FDA-Public Use
  Company Number: US-PFIZER INC-2012131703

PATIENT
  Sex: Female
  Weight: 104 kg

DRUGS (7)
  1. CYCLOBENZAPRINE [Suspect]
     Indication: BACK PAIN
  2. LYRICA [Suspect]
     Indication: PAIN
     Dosage: 75 MG, 3X/DAY
     Dates: start: 20100601
  3. CYCLOBENZAPRINE [Suspect]
     Indication: MUSCLE SPASMS
     Dosage: 10 MG, 3X/DAY
     Dates: start: 20100601
  4. MELOXICAM [Suspect]
     Indication: INFLAMMATION
  5. HYDROCODONE BITARTRATE + ACETAMINOPHEN [Suspect]
     Indication: PAIN
     Dosage: 7.5/500 MG, AS NEEDED
     Dates: start: 20100601
  6. CYCLOBENZAPRINE [Suspect]
     Indication: PAIN IN EXTREMITY
  7. MELOXICAM [Suspect]
     Indication: ARTHRITIS
     Dosage: 15 MG, DAILY
     Dates: start: 20100601

REACTIONS (2)
  - HYPERTENSION [None]
  - INTERVERTEBRAL DISC DISORDER [None]
